FAERS Safety Report 4333289-8 (Version None)
Quarter: 2004Q2

REPORT INFORMATION
  Report Type: 
  Country: None (occurrence: None)
  Receive Date: 20040405
  Receipt Date: 20040330
  Transmission Date: 20050107
  Serious: Yes (Death)
  Sender: FDA-Public Use
  Company Number: 04-03-0469

PATIENT
  Age: 77 Year
  Sex: Female

DRUGS (1)
  1. CLOZAPINE [Suspect]
     Indication: DEMENTIA
     Dosage: 31.5-500MG QD ORAL
     Route: 048
     Dates: start: 20001001, end: 20040201

REACTIONS (2)
  - PNEUMONIA [None]
  - RESPIRATORY ARREST [None]
